FAERS Safety Report 5836010-7 (Version None)
Quarter: 2008Q3

REPORT INFORMATION
  Report Type: 
  Country: None (occurrence: None)
  Receive Date: 20080806
  Receipt Date: 20080725
  Transmission Date: 20090109
  Serious: Yes (Other)
  Sender: FDA-Public Use
  Company Number: US-PFIZER INC-2008053283

PATIENT
  Sex: Female
  Weight: 56.7 kg

DRUGS (9)
  1. NEURONTIN [Suspect]
     Indication: NEURALGIA
     Dates: start: 20080101, end: 20080101
  2. LYRICA [Suspect]
     Indication: NEURALGIA
     Route: 048
  3. LYRICA [Suspect]
     Indication: NEUROPATHY PERIPHERAL
  4. NORCO [Concomitant]
  5. HYZAAR [Concomitant]
  6. AMLODIPINE [Concomitant]
  7. ATENOLOL [Concomitant]
  8. ACETYLSALICYLIC ACID SRT [Concomitant]
  9. PRAVACHOL [Concomitant]

REACTIONS (4)
  - ABASIA [None]
  - DRUG INEFFECTIVE [None]
  - NEURALGIA [None]
  - NEUROPATHY PERIPHERAL [None]
